FAERS Safety Report 5582872-0 (Version None)
Quarter: 2007Q4

REPORT INFORMATION
  Report Type: 
  Country: None (occurrence: None)
  Receive Date: 20071231
  Receipt Date: 20071218
  Transmission Date: 20080405
  Serious: Yes (Hospitalization, Other)
  Sender: FDA-Public Use
  Company Number: 2007AL005475

PATIENT
  Age: 40 Year
  Sex: Male

DRUGS (1)
  1. DICLOFENAC SODIUM [Suspect]
     Indication: PERINEAL PAIN
     Dosage: 50 MG;TID

REACTIONS (3)
  - COLONIC POLYP [None]
  - ILEAL STENOSIS [None]
  - ILEAL ULCER [None]
